FAERS Safety Report 13346409 (Version 1)
Quarter: 2017Q1

REPORT INFORMATION
  Report Type: Spontaneous
  Country: US (occurrence: US)
  Receive Date: 20170317
  Receipt Date: 20170317
  Transmission Date: 20170428
  Serious: No
  Sender: FDA-Public Use
  Company Number: US-009507513-1703USA000854

PATIENT
  Age: 85 Year
  Sex: Female
  Weight: 70.75 kg

DRUGS (2)
  1. ZETIA [Suspect]
     Active Substance: EZETIMIBE
     Indication: HYPERCHOLESTEROLAEMIA
     Dosage: 10 MG, SOME DAYS
     Route: 048
     Dates: start: 201503
  2. ZETIA [Suspect]
     Active Substance: EZETIMIBE
     Dosage: 10 MG, EVERY OTHER DAY
     Route: 048
     Dates: end: 20170227

REACTIONS (2)
  - Inappropriate schedule of drug administration [Unknown]
  - Weight decreased [Not Recovered/Not Resolved]

NARRATIVE: CASE EVENT DATE: 201503
